FAERS Safety Report 4904726-2 (Version None)
Quarter: 2006Q1

REPORT INFORMATION
  Report Type: 
  Country: None (occurrence: None)
  Receive Date: 20060208
  Receipt Date: 20050926
  Transmission Date: 20060701
  Serious: No
  Sender: FDA-Public Use
  Company Number: US-GLAXOSMITHKLINE-A0575886A

PATIENT
  Age: 26 Year
  Sex: Female

DRUGS (5)
  1. PAROXETINE HCL [Suspect]
     Dosage: 30MG PER DAY
     Route: 048
  2. WELLBUTRIN XL [Suspect]
     Indication: ANXIETY
     Dosage: 150MG PER DAY
     Route: 048
  3. PAROXETINE HCL [Concomitant]
  4. XANAX [Concomitant]
  5. TRICYCLINE [Concomitant]

REACTIONS (7)
  - CHEST DISCOMFORT [None]
  - DYSPNOEA [None]
  - HYPERHIDROSIS [None]
  - LIBIDO DECREASED [None]
  - SCRATCH [None]
  - THROAT TIGHTNESS [None]
  - TREMOR [None]
